FAERS Safety Report 8198885-9 (Version None)
Quarter: 2012Q1

REPORT INFORMATION
  Report Type: 
  Country: None (occurrence: None)
  Receive Date: 20120309
  Receipt Date: 20120222
  Transmission Date: 20120608
  Serious: No
  Sender: FDA-Public Use
  Company Number: US-AMGEN-USASP2012011694

PATIENT
  Age: 73 Year
  Sex: Female

DRUGS (5)
  1. PROLIA [Suspect]
     Indication: OSTEOPOROSIS POSTMENOPAUSAL
     Dosage: 60 MG, Q6MO
     Dates: start: 20110901
  2. VITAMINS                           /00067501/ [Concomitant]
  3. FISH OIL [Concomitant]
  4. PANTOPRAZOLE [Concomitant]
     Dosage: UNK
  5. PANTOPRAZOLE [Concomitant]

REACTIONS (2)
  - BLADDER PAIN [None]
  - GASTROOESOPHAGEAL REFLUX DISEASE [None]
